FAERS Safety Report 6575910-X (Version None)
Quarter: 2010Q1

REPORT INFORMATION
  Report Type: 
  Country: None (occurrence: None)
  Receive Date: 20100209
  Receipt Date: 20100201
  Transmission Date: 20100710
  Serious: Yes (Other)
  Sender: FDA-Public Use
  Company Number: ES-SP-2010-00828

PATIENT
  Age: 83 Year
  Sex: Male

DRUGS (1)
  1. BCG  THERAPEUTICS [Suspect]
     Indication: BLADDER CANCER
     Route: 043

REACTIONS (1)
  - PERITONEAL ABSCESS [None]
